FAERS Safety Report 9192241 (Version 1)
Quarter: 2013Q1

REPORT INFORMATION
  Report Type: Spontaneous
  Country: NL (occurrence: NL)
  Receive Date: 20130327
  Receipt Date: 20130327
  Transmission Date: 20140127
  Serious: Yes (Death)
  Sender: FDA-Public Use
  Company Number: PHHY2013NL029527

PATIENT
  Age: 83 Year
  Sex: Female

DRUGS (3)
  1. ACLASTA [Suspect]
     Indication: OSTEOPOROSIS
     Dosage: 5 MG, YEARLY
     Route: 042
     Dates: start: 20100309
  2. ACLASTA [Suspect]
     Dosage: 5 MG, YEARLY
     Route: 042
     Dates: start: 20110408
  3. ACLASTA [Suspect]
     Dosage: 5 MG, YEARLY
     Route: 042
     Dates: start: 20120413

REACTIONS (1)
  - Death [Fatal]
